FAERS Safety Report 9307921 (Version 3)
Quarter: 2013Q2

REPORT INFORMATION
  Report Type: Spontaneous
  Country: RU (occurrence: RU)
  Receive Date: 20130524
  Receipt Date: 20130618
  Transmission Date: 20140414
  Serious: Yes (Hospitalization, Other)
  Sender: FDA-Public Use
  Company Number: RU-AMGEN-RUSSP2013036582

PATIENT
  Age: 55 Year
  Sex: Male
  Weight: 95 kg

DRUGS (5)
  1. VECTIBIX [Suspect]
     Indication: COLON CANCER
     Dosage: 400 MG, Q2WK
     Route: 042
     Dates: start: 20111010, end: 20130208
  2. FOLINIC ACID [Concomitant]
     Indication: COLON CANCER STAGE IV
     Dosage: UNK, (19)
     Route: 042
     Dates: start: 20111010
  3. FLUOROURACIL [Concomitant]
     Indication: COLON CANCER STAGE IV
     Dosage: UNK, (19)
     Route: 042
     Dates: start: 20111010
  4. IRINOTECAN [Concomitant]
     Indication: COLON CANCER STAGE IV
     Dosage: UNK, (19)
     Route: 042
     Dates: start: 20111010, end: 20120906
  5. OXALIPLATIN [Concomitant]
     Indication: COLON CANCER STAGE IV
     Dosage: UNK, (9)
     Route: 042
     Dates: start: 20121016

REACTIONS (4)
  - Metastases to liver [Unknown]
  - Malignant melanoma [Recovered/Resolved]
  - Melanocytic naevus [Unknown]
  - Skin toxicity [Unknown]
